FAERS Safety Report 23308315 (Version 5)
Quarter: 2024Q3

REPORT INFORMATION
  Report Type: Spontaneous
  Country: US (occurrence: US)
  Receive Date: 20231218
  Receipt Date: 20240923
  Transmission Date: 20241017
  Serious: No
  Sender: SANOFI AVENTIS
  Company Number: US-SA-2023SA382779

PATIENT
  Age: 40 Year
  Sex: Male

DRUGS (4)
  1. ELOCTATE [Suspect]
     Active Substance: EFMOROCTOCOG ALFA
     Indication: Factor VIII deficiency
     Dosage: 4700 U OR 4500 UNITS (4230-5170) , Q4D (EVERY 4 DAYS)/BIW
     Route: 042
     Dates: start: 201712
  2. ELOCTATE [Suspect]
     Active Substance: EFMOROCTOCOG ALFA
     Indication: Factor VIII deficiency
     Dosage: 4700 U OR 4500 UNITS (4230-5170) , Q4D (EVERY 4 DAYS)/BIW
     Route: 042
     Dates: start: 201712
  3. ELOCTATE [Suspect]
     Active Substance: EFMOROCTOCOG ALFA
     Dosage: 4700 U (4230-5170), DAILY AS NEEDED (PRN)
     Route: 042
     Dates: start: 201712
  4. ELOCTATE [Suspect]
     Active Substance: EFMOROCTOCOG ALFA
     Dosage: 4700 U (4230-5170), DAILY AS NEEDED (PRN)
     Route: 042
     Dates: start: 201712

REACTIONS (8)
  - Haemorrhage [Recovered/Resolved]
  - Haemorrhage [Recovered/Resolved]
  - Peripheral swelling [Recovering/Resolving]
  - Epistaxis [Not Recovered/Not Resolved]
  - Limb injury [Unknown]
  - Haemorrhage [Not Recovered/Not Resolved]
  - Weight increased [Unknown]
  - Malaise [Unknown]

NARRATIVE: CASE EVENT DATE: 20231121
